FAERS Safety Report 7833121-1 (Version None)
Quarter: 2011Q4

REPORT INFORMATION
  Report Type: 
  Country: None (occurrence: None)
  Receive Date: 20111024
  Receipt Date: 20111012
  Transmission Date: 20120403
  Serious: Yes (Other)
  Sender: FDA-Public Use
  Company Number: US-JNJFOC-20110605652

PATIENT
  Sex: Male

DRUGS (2)
  1. DILANTIN [Suspect]
     Indication: CONVULSION
     Route: 065
  2. ZYTIGA [Suspect]
     Indication: PROSTATE CANCER
     Dosage: 250 MG TABLETS
     Route: 048
     Dates: start: 20110607, end: 20110607

REACTIONS (1)
  - TRANSIENT ISCHAEMIC ATTACK [None]
